FAERS Safety Report 15269155 (Version 3)
Quarter: 2019Q4

REPORT INFORMATION
  Report Type: Report from Study
  Country: JP (occurrence: JP)
  Receive Date: 20180813
  Receipt Date: 20191106
  Transmission Date: 20200122
  Serious: Yes (Death, Life-Threatening, Hospitalization, Other)
  Sender: FDA-Public Use
  Company Number: JP-BRISTOL-MYERS SQUIBB COMPANY-BMS-2017-071474

PATIENT
  Age: 69 Year
  Sex: Male
  Weight: 58 kg

DRUGS (1)
  1. NIVOLUMAB [Suspect]
     Active Substance: NIVOLUMAB
     Indication: HEAD AND NECK CANCER
     Dosage: 3 MILLIGRAM/KILOGRAM
     Route: 041
     Dates: start: 20170612, end: 20170710

REACTIONS (14)
  - Pneumonia [Unknown]
  - Staphylococcal infection [Unknown]
  - Rash [Unknown]
  - Pneumatosis intestinalis [Recovered/Resolved]
  - Oral mucosal eruption [Unknown]
  - Malignant neoplasm progression [Fatal]
  - Vascular device infection [Recovered/Resolved]
  - Pleural effusion [Recovering/Resolving]
  - Ascites [Recovering/Resolving]
  - Conjunctivitis bacterial [Recovered/Resolved]
  - Tracheostomy infection [Unknown]
  - Thrombocytopenia [Recovering/Resolving]
  - Stevens-Johnson syndrome [Recovered/Resolved]
  - Bronchitis [Unknown]

NARRATIVE: CASE EVENT DATE: 2017
